FAERS Safety Report 7968779-X (Version None)
Quarter: 2011Q4

REPORT INFORMATION
  Report Type: 
  Country: None (occurrence: None)
  Receive Date: 20111209
  Receipt Date: 20111206
  Transmission Date: 20120403
  Serious: Yes (Death)
  Sender: FDA-Public Use
  Company Number: US-ABBOTT-11P-163-0881277-00

PATIENT
  Sex: Male

DRUGS (3)
  1. CREON [Suspect]
     Indication: PANCREATIC CARCINOMA
  2. CREON [Suspect]
     Indication: HEPATIC NEOPLASM MALIGNANT
  3. UNKNOWN MEDICATIONS [Concomitant]
     Indication: PRODUCT USED FOR UNKNOWN INDICATION

REACTIONS (1)
  - PANCREATIC CARCINOMA METASTATIC [None]
